FAERS Safety Report 6039016-0 (Version None)
Quarter: 2009Q1

REPORT INFORMATION
  Report Type: 
  Country: None (occurrence: None)
  Receive Date: 20090115
  Receipt Date: 20090113
  Transmission Date: 20090719
  Serious: Yes (Death)
  Sender: FDA-Public Use
  Company Number: US-BRISTOL-MYERS SQUIBB COMPANY-14467963

PATIENT
  Age: 42 Year
  Sex: Female
  Weight: 108 kg

DRUGS (5)
  1. KENALOG [Suspect]
     Route: 014
     Dates: start: 20071016
  2. TYLENOL (CAPLET) [Concomitant]
  3. MOTRIN [Concomitant]
  4. MULTI-VITAMIN [Concomitant]
  5. TOPAMAX [Concomitant]

REACTIONS (1)
  - DEATH [None]
